FAERS Safety Report 5565850-7 (Version None)
Quarter: 2007Q4

REPORT INFORMATION
  Report Type: 
  Country: None (occurrence: None)
  Receive Date: 20071213
  Receipt Date: 20071128
  Transmission Date: 20080405
  Serious: Yes (Death)
  Sender: FDA-Public Use
  Company Number: 2007002334

PATIENT
  Age: 58 Year
  Sex: Female

DRUGS (6)
  1. TARCEVA [Suspect]
     Indication: NON-SMALL CELL LUNG CANCER
     Dosage: (150 MG, QD), ORAL
     Route: 048
     Dates: start: 20071015, end: 20071019
  2. GEMCITABINE [Concomitant]
  3. CARBOPLATIN [Concomitant]
  4. IBUPROFEN [Concomitant]
  5. PERINDOPRIL ERBUMINE [Concomitant]
  6. BENDROFLUMETHIAZIDE (BENDROFLUMETHIAZIDE) [Concomitant]

REACTIONS (2)
  - DIARRHOEA [None]
  - RASH [None]
